FAERS Safety Report 10581266 (Version 3)
Quarter: 2015Q1

REPORT INFORMATION
  Report Type: Spontaneous
  Country: US (occurrence: US)
  Receive Date: 20141113
  Receipt Date: 20150204
  Transmission Date: 20150720
  Serious: Yes (Hospitalization)
  Sender: FDA-Public Use
  Company Number: US-JNJFOC-20140414866

PATIENT
  Age: 54 Year
  Sex: Female
  Weight: 90.72 kg

DRUGS (4)
  1. PREDNISONE. [Concomitant]
     Active Substance: PREDNISONE
     Indication: RHEUMATOID ARTHRITIS
     Route: 048
     Dates: start: 2005
  2. SIMPONI [Suspect]
     Active Substance: GOLIMUMAB
     Indication: RHEUMATOID ARTHRITIS
     Route: 058
     Dates: start: 2013
  3. SIMPONI [Suspect]
     Active Substance: GOLIMUMAB
     Indication: RHEUMATOID ARTHRITIS
     Route: 058
     Dates: end: 20140417
  4. SIMPONI [Suspect]
     Active Substance: GOLIMUMAB
     Indication: RHEUMATOID ARTHRITIS
     Route: 058
     Dates: start: 2012

REACTIONS (9)
  - Injection site haemorrhage [Recovering/Resolving]
  - Needle issue [Unknown]
  - Injury [Unknown]
  - Pain [Recovering/Resolving]
  - Knee arthroplasty [Unknown]
  - Device malfunction [Recovered/Resolved]
  - Drug dose omission [Unknown]
  - Device malfunction [Unknown]
  - Injection site scar [Not Recovered/Not Resolved]

NARRATIVE: CASE EVENT DATE: 2014
